APPROVED DRUG PRODUCT: BUDESONIDE
Active Ingredient: BUDESONIDE
Strength: 3MG
Dosage Form/Route: CAPSULE, DELAYED RELEASE;ORAL
Application: A209041 | Product #001
Applicant: SCIECURE PHARMA INC
Approved: Sep 28, 2017 | RLD: No | RS: No | Type: DISCN